FAERS Safety Report 9255038 (Version 1)
Quarter: 2013Q2

REPORT INFORMATION
  Report Type: Spontaneous
  Country: US (occurrence: None)
  Receive Date: 20130418
  Receipt Date: 20130418
  Transmission Date: 20140414
  Serious: Yes (Hospitalization)
  Sender: FDA-Public Use
  Company Number: 2013P1004627

PATIENT
  Age: 58 Year
  Sex: Male

DRUGS (5)
  1. INFUMORPH [Suspect]
     Indication: PAIN
  2. INFUMORPH [Suspect]
     Indication: BACK PAIN
  3. INFUMORPH [Suspect]
     Indication: INTERVERTEBRAL DISC DEGENERATION
  4. INFUMORPH [Suspect]
  5. INFUMORPH [Suspect]

REACTIONS (3)
  - Cellulitis [None]
  - Drug effect decreased [None]
  - Pain [None]
